FAERS Safety Report 7360890-X (Version None)
Quarter: 2011Q1

REPORT INFORMATION
  Report Type: 
  Country: None (occurrence: None)
  Receive Date: 20110310
  Receipt Date: 20110225
  Transmission Date: 20110831
  Serious: Yes (Other)
  Sender: FDA-Public Use
  Company Number: 2010-3953

PATIENT
  Age: 78 Year
  Sex: Male

DRUGS (8)
  1. DYSPORT [Suspect]
     Indication: SALIVARY HYPERSECRETION
     Dosage: 500 UNITS (500 UNITS, SINGLE CYCLE); INTRAMUSCULAR,
     Route: 030
     Dates: start: 20100720, end: 20100720
  2. DYSPORT [Suspect]
     Indication: FACIAL SPASM
     Dosage: 500 UNITS (500 UNITS, SINGLE CYCLE); INTRAMUSCULAR,
     Route: 030
     Dates: start: 20100720, end: 20100720
  3. DYSPORT [Suspect]
     Indication: OFF LABEL USE
     Dosage: 500 UNITS (500 UNITS, SINGLE CYCLE); INTRAMUSCULAR,
     Route: 030
     Dates: start: 20100720, end: 20100720
  4. DYSPORT [Suspect]
     Indication: SALIVARY HYPERSECRETION
     Dosage: 500 UNITS (500 UNITS, SINGLE CYCLE); INTRAMUSCULAR,
     Route: 030
     Dates: start: 20100420, end: 20100420
  5. DYSPORT [Suspect]
     Indication: FACIAL SPASM
     Dosage: 500 UNITS (500 UNITS, SINGLE CYCLE); INTRAMUSCULAR,
     Route: 030
     Dates: start: 20100420, end: 20100420
  6. DYSPORT [Suspect]
     Indication: OFF LABEL USE
     Dosage: 500 UNITS (500 UNITS, SINGLE CYCLE); INTRAMUSCULAR,
     Route: 030
     Dates: start: 20100420, end: 20100420
  7. ABOBOTULINUM TOXIN A [Suspect]
  8. MULTIPLE UNSPECIFIED MEDICATIONS (ALL OTHER THERAPEUTIC PRODUCTS) [Concomitant]

REACTIONS (2)
  - DYSPHAGIA [None]
  - CONDITION AGGRAVATED [None]
